FAERS Safety Report 8995165 (Version 1)
Quarter: 2012Q4

REPORT INFORMATION
  Report Type: Spontaneous
  Country: US (occurrence: None)
  Receive Date: 20121221
  Receipt Date: 20121221
  Transmission Date: 20130627
  Serious: Yes (Hospitalization)
  Sender: FDA-Public Use
  Company Number: FK201203816

PATIENT
  Age: 54 Year

DRUGS (3)
  1. DEXAMETHASONE SODIUM PHOSPHATE [Suspect]
     Indication: MULTIPLE MYELOMA
  2. VELCADE [Suspect]
     Indication: MULTIPLE MYELOMA
  3. DOXIL [Suspect]
     Indication: MULTIPLE MYELOMA

REACTIONS (3)
  - Bacteraemia [None]
  - Lobar pneumonia [None]
  - Device related infection [None]
